FAERS Safety Report 9137140 (Version 1)
Quarter: 2013Q1

REPORT INFORMATION
  Report Type: Spontaneous
  Country: US (occurrence: US)
  Receive Date: 20130219
  Receipt Date: 20130219
  Transmission Date: 20140127
  Serious: No
  Sender: FDA-Public Use
  Company Number: US-BRISTOL-MYERS SQUIBB COMPANY-17131871

PATIENT
  Age: 39 Year
  Sex: Female

DRUGS (3)
  1. ABATACEPT SUBQ INJECTION 125MG/ML [Suspect]
     Dosage: 00032188-31
     Route: 058
  2. VITAMIN D [Concomitant]
  3. MAXALT [Concomitant]

REACTIONS (1)
  - Injection site erythema [Unknown]
